FAERS Safety Report 9859187 (Version 2)
Quarter: 2014Q2

REPORT INFORMATION
  Report Type: Spontaneous
  Country: IT (occurrence: None)
  Receive Date: 20140129
  Receipt Date: 20140425
  Transmission Date: 20141212
  Serious: Yes (Hospitalization)
  Sender: FDA-Public Use
  Company Number: AUR-APL-2014-00490

PATIENT
  Age: 52 Year
  Sex: Male

DRUGS (5)
  1. AMOXICILLIN [Suspect]
     Indication: HELICOBACTER INFECTION
     Dosage: 1000 MG, TOTAL, ORAL
     Route: 048
     Dates: start: 20131031, end: 20131031
  2. CLARITHROMYCIN (CLARITHROMYCIN) [Suspect]
     Indication: HELICOBACTER INFECTION
     Dosage: 500 MG, TOTAL, ORAL
     Route: 048
     Dates: start: 20131031, end: 20131031
  3. LOBIVON (NEBIVOLOL HYDROCHLORIDE) [Concomitant]
  4. PANTOPRAZOLE SODIUM (PANTOPRAZOLE SODIUM SESQUIHYDRATE) [Concomitant]
  5. MESALAZIN (MESALAZINE) [Concomitant]

REACTIONS (4)
  - Dyspnoea [None]
  - Nausea [None]
  - Rash [None]
  - Tachycardia [None]
